FAERS Safety Report 7394822-5 (Version None)
Quarter: 2011Q2

REPORT INFORMATION
  Report Type: 
  Country: None (occurrence: None)
  Receive Date: 20110405
  Receipt Date: 20110329
  Transmission Date: 20111010
  Serious: Yes (Other)
  Sender: FDA-Public Use
  Company Number: A0885137A

PATIENT
  Age: 37 Year
  Sex: Female

DRUGS (4)
  1. ISENTRESS [Suspect]
     Indication: ANTIVIRAL TREATMENT
     Dosage: 800MGD PER DAY
     Route: 048
     Dates: start: 20051013, end: 20070409
  2. EPIVIR [Suspect]
     Indication: ANTIVIRAL TREATMENT
     Dosage: 300MGD PER DAY
     Route: 048
     Dates: start: 20051013, end: 20070408
  3. ISENTRESS [Concomitant]
     Dosage: 800MGD PER DAY
     Route: 048
     Dates: start: 20070509
  4. VIREAD [Suspect]
     Indication: ANTIVIRAL TREATMENT
     Dosage: 300MGD PER DAY
     Route: 048
     Dates: start: 20051013, end: 20070408

REACTIONS (2)
  - DRUG EXPOSURE DURING PREGNANCY [None]
  - ABORTION INDUCED [None]
